FAERS Safety Report 4371884-0 (Version None)
Quarter: 2004Q2

REPORT INFORMATION
  Report Type: 
  Country: None (occurrence: None)
  Receive Date: 20040602
  Receipt Date: 20040602
  Transmission Date: 20050107
  Serious: No
  Sender: FDA-Public Use
  Company Number: None

PATIENT
  Sex: Male
  Weight: 70 kg

DRUGS (3)
  1. VALPROIC ACID [Suspect]
     Indication: AFFECTIVE DISORDER
     Dosage: 250 MG/500 MG AM/PM ORAL
     Route: 048
  2. RISPERIDONE [Concomitant]
  3. HYDROXYZINE [Concomitant]

REACTIONS (4)
  - ABDOMINAL DISCOMFORT [None]
  - ABDOMINAL PAIN UPPER [None]
  - NAUSEA [None]
  - VOMITING [None]
